FAERS Safety Report 10407300 (Version 1)
Quarter: 2014Q3

REPORT INFORMATION
  Report Type: Spontaneous
  Country: NL (occurrence: NL)
  Receive Date: 20140825
  Receipt Date: 20140825
  Transmission Date: 20150326
  Serious: Yes (Life-Threatening)
  Sender: FDA-Public Use
  Company Number: NL-BAYER-2014-125167

PATIENT
  Age: 75 Year
  Sex: Female

DRUGS (2)
  1. CIPROFLOXACIN. [Suspect]
     Active Substance: CIPROFLOXACIN
     Indication: PYELONEPHRITIS
     Dosage: 500 MG, QD
     Dates: start: 20131213, end: 20131220
  2. OFLOXACIN. [Interacting]
     Active Substance: OFLOXACIN
     Indication: PYELONEPHRITIS
     Dosage: 200 MG, QD
     Dates: start: 20131213, end: 20131220

REACTIONS (2)
  - Arthritis reactive [None]
  - Drug interaction [None]

NARRATIVE: CASE EVENT DATE: 20131220
